FAERS Safety Report 10508315 (Version 1)
Quarter: 2014Q4

REPORT INFORMATION
  Report Type: Spontaneous
  Country: US (occurrence: None)
  Receive Date: 20141008
  Receipt Date: 20141008
  Transmission Date: 20150528
  Serious: Yes (Other)
  Sender: FDA-Public Use
  Company Number: None

PATIENT
  Age: 62 Year
  Sex: Male
  Weight: 84.37 kg

DRUGS (5)
  1. SIMVASTATIN 10 MG [Suspect]
     Active Substance: SIMVASTATIN
     Dosage: 1 PILL
     Route: 048
  2. ALTACE [Concomitant]
     Active Substance: RAMIPRIL
  3. RAPAFLO [Concomitant]
     Active Substance: SILODOSIN
  4. AGGRENOX [Concomitant]
     Active Substance: ASPIRIN\DIPYRIDAMOLE
  5. VALIUM [Concomitant]
     Active Substance: DIAZEPAM

REACTIONS (2)
  - Product substitution issue [None]
  - Abdominal pain [None]
